FAERS Safety Report 24466101 (Version 1)
Quarter: 2024Q4

REPORT INFORMATION
  Report Type: Report from Study
  Country: US (occurrence: US)
  Receive Date: 20241018
  Receipt Date: 20241018
  Transmission Date: 20250114
  Serious: No
  Sender: ROCHE
  Company Number: US-ROCHE-3530101

PATIENT
  Age: 48 Year
  Sex: Female
  Weight: 91.63 kg

DRUGS (8)
  1. XOLAIR [Suspect]
     Active Substance: OMALIZUMAB
     Indication: Asthma
     Route: 058
  2. XOLAIR [Suspect]
     Active Substance: OMALIZUMAB
  3. BUDESONIDE [Concomitant]
     Active Substance: BUDESONIDE
  4. EPINEPHRINE [Concomitant]
     Active Substance: EPINEPHRINE
  5. LEVALBUTEROL [Concomitant]
     Active Substance: LEVALBUTEROL
  6. MONTELUKAST [Concomitant]
     Active Substance: MONTELUKAST
  7. PREDNISOLONE [Concomitant]
     Active Substance: PREDNISOLONE
  8. CETIRIZINE HYDROCHLORIDE [Concomitant]
     Active Substance: CETIRIZINE HYDROCHLORIDE

REACTIONS (17)
  - Rhinitis allergic [Unknown]
  - Chronic sinusitis [Unknown]
  - Rhinorrhoea [Unknown]
  - Paranasal sinus discomfort [Unknown]
  - Migraine [Unknown]
  - Sinus headache [Unknown]
  - Sneezing [Unknown]
  - Illness [Unknown]
  - Throat tightness [Unknown]
  - Throat irritation [Unknown]
  - Choking [Unknown]
  - Dermatitis [Unknown]
  - Urticaria [Unknown]
  - Lacrimation increased [Unknown]
  - Eye pruritus [Unknown]
  - Nasal congestion [Unknown]
  - Pruritus [Unknown]
